FAERS Safety Report 7453392 (Version 2)
Quarter: 2020Q3

REPORT INFORMATION
  Report Type: Report from Study
  Country: US (occurrence: US)
  Receive Date: 20100706
  Receipt Date: 20100827
  Transmission Date: 20201104
  Serious: Yes (Death)
  Sender: FDA-Public Use
  Company Number: US-JNJFOC-20100607495

PATIENT
  Age: 47 Year
  Sex: Male
  Weight: 83.91 kg

DRUGS (23)
  1. USTEKINUMAB [Suspect]
     Active Substance: USTEKINUMAB
     Route: 058
  2. USTEKINUMAB [Suspect]
     Active Substance: USTEKINUMAB
     Route: 058
  3. IBUPROFEN. [Concomitant]
     Active Substance: IBUPROFEN
     Route: 048
  4. USTEKINUMAB [Suspect]
     Active Substance: USTEKINUMAB
     Route: 058
  5. USTEKINUMAB [Suspect]
     Active Substance: USTEKINUMAB
     Route: 058
  6. USTEKINUMAB [Suspect]
     Active Substance: USTEKINUMAB
     Route: 058
  7. USTEKINUMAB [Suspect]
     Active Substance: USTEKINUMAB
     Route: 058
  8. USTEKINUMAB [Suspect]
     Active Substance: USTEKINUMAB
     Route: 058
  9. USTEKINUMAB [Suspect]
     Active Substance: USTEKINUMAB
     Route: 058
  10. USTEKINUMAB [Suspect]
     Active Substance: USTEKINUMAB
     Route: 058
  11. USTEKINUMAB [Suspect]
     Active Substance: USTEKINUMAB
     Route: 058
  12. USTEKINUMAB [Suspect]
     Active Substance: USTEKINUMAB
     Route: 058
  13. USTEKINUMAB [Suspect]
     Active Substance: USTEKINUMAB
     Route: 058
  14. USTEKINUMAB [Suspect]
     Active Substance: USTEKINUMAB
     Route: 058
  15. USTEKINUMAB [Suspect]
     Active Substance: USTEKINUMAB
     Route: 058
  16. USTEKINUMAB [Suspect]
     Active Substance: USTEKINUMAB
     Route: 058
  17. USTEKINUMAB [Suspect]
     Active Substance: USTEKINUMAB
     Route: 058
  18. USTEKINUMAB [Suspect]
     Active Substance: USTEKINUMAB
     Route: 058
  19. USTEKINUMAB [Suspect]
     Active Substance: USTEKINUMAB
     Indication: PSORIASIS
     Route: 058
  20. USTEKINUMAB [Suspect]
     Active Substance: USTEKINUMAB
     Route: 058
  21. USTEKINUMAB [Suspect]
     Active Substance: USTEKINUMAB
     Route: 058
  22. USTEKINUMAB [Suspect]
     Active Substance: USTEKINUMAB
     Route: 058
  23. USTEKINUMAB [Suspect]
     Active Substance: USTEKINUMAB
     Route: 058

REACTIONS (1)
  - Testis cancer [Fatal]

NARRATIVE: CASE EVENT DATE: 20100201
